FAERS Safety Report 13446287 (Version 3)
Quarter: 2018Q3

REPORT INFORMATION
  Report Type: Spontaneous
  Country: US (occurrence: US)
  Receive Date: 20170417
  Receipt Date: 20180704
  Transmission Date: 20181010
  Serious: Yes (Hospitalization)
  Sender: FDA-Public Use
  Company Number: US-ACCORD-050297

PATIENT

DRUGS (1)
  1. FLUOROURACIL. [Suspect]
     Active Substance: FLUOROURACIL
     Dosage: RECEIVED 4500 MG WITHIN 2 HOURS INSTEAD OF FULL 2?DAY
     Route: 042

REACTIONS (10)
  - Oedema peripheral [Recovered/Resolved]
  - Medication error [Unknown]
  - Thrombocytopenia [Recovered/Resolved]
  - Bone marrow failure [Recovered/Resolved]
  - Gastrointestinal toxicity [Recovered/Resolved]
  - Accidental overdose [Unknown]
  - Mucosal inflammation [Recovered/Resolved]
  - Asthenia [Recovered/Resolved]
  - Incorrect drug administration duration [Unknown]
  - Arrhythmia [Recovered/Resolved]
